FAERS Safety Report 4328846-9 (Version None)
Quarter: 2004Q1

REPORT INFORMATION
  Report Type: 
  Country: None (occurrence: None)
  Receive Date: 20040329
  Receipt Date: 20040115
  Transmission Date: 20041129
  Serious: No
  Sender: FDA-Public Use
  Company Number: 04P-163-0247248-00

PATIENT
  Age: 49 Year
  Sex: Female

DRUGS (9)
  1. HUMIRA [Suspect]
     Indication: RHEUMATOID ARTHRITIS
     Dosage: 40 MG, 1 IN 2 WK, SUBCUTANEOUS
     Route: 058
     Dates: start: 20031101, end: 20040114
  2. PENICILLAMINE [Concomitant]
  3. FELODIPINE [Concomitant]
  4. PANTOPRAZOLE [Concomitant]
  5. LEVOTHYROXINE SODIUM [Concomitant]
  6. FOLIC ACID [Concomitant]
  7. CONJUGATED ESTROGEN [Concomitant]
  8. METHOTREXATE [Concomitant]
  9. GABAPENTIN [Concomitant]

REACTIONS (1)
  - HEADACHE [None]
